FAERS Safety Report 5741186-6 (Version None)
Quarter: 2008Q2

REPORT INFORMATION
  Report Type: 
  Country: None (occurrence: None)
  Receive Date: 20080516
  Receipt Date: 20080507
  Transmission Date: 20081010
  Serious: Yes (Death, Hospitalization)
  Sender: FDA-Public Use
  Company Number: JP-AMGEN-US278093

PATIENT
  Age: 65 Year
  Sex: Male

DRUGS (4)
  1. NEUPOGEN [Suspect]
     Indication: CHEMOTHERAPY
     Route: 065
  2. RETINOIC ACID [Suspect]
     Route: 065
  3. IDARUBICIN HCL [Concomitant]
     Route: 065
  4. CYTARABINE [Concomitant]
     Route: 065

REACTIONS (1)
  - PULMONARY HAEMORRHAGE [None]
